FAERS Safety Report 7480315-3 (Version None)
Quarter: 2011Q2

REPORT INFORMATION
  Report Type: 
  Country: None (occurrence: None)
  Receive Date: 20110512
  Receipt Date: 20110512
  Transmission Date: 20111010
  Serious: No
  Sender: FDA-Public Use
  Company Number: None

PATIENT
  Sex: Female
  Weight: 91.6266 kg

DRUGS (1)
  1. EFFEXOR [Suspect]

REACTIONS (4)
  - CONDITION AGGRAVATED [None]
  - PAIN [None]
  - PRODUCT SUBSTITUTION ISSUE [None]
  - DRUG EFFECT DECREASED [None]
